FAERS Safety Report 19895441 (Version 1)
Quarter: 2021Q3

REPORT INFORMATION
  Report Type: Report from Study
  Country: TR (occurrence: TR)
  Receive Date: 20210929
  Receipt Date: 20210929
  Transmission Date: 20211014
  Serious: Yes (Life-Threatening, Hospitalization)
  Sender: FDA-Public Use
  Company Number: TR-CELGENEUS-TUR-20210906935

PATIENT
  Age: 75 Year
  Sex: Female

DRUGS (23)
  1. CALCIMAX D3 [Concomitant]
     Indication: FATIGUE
     Dosage: 1000 MILLIGRAM
     Route: 048
     Dates: start: 20200205
  2. PANTOPRAZOL [Concomitant]
     Active Substance: PANTOPRAZOLE SODIUM
     Indication: PROPHYLAXIS
     Dosage: 80 MILLIGRAM
     Route: 048
     Dates: start: 20200520
  3. TRAVOCORT [Concomitant]
     Active Substance: DIFLUCORTOLONE VALERATE\ISOCONAZOLE NITRATE
     Indication: ANTIFUNGAL PROPHYLAXIS
     Route: 061
     Dates: start: 20200520
  4. KENACORT?A [Concomitant]
     Active Substance: TRIAMCINOLONE ACETONIDE
     Indication: APHTHOUS ULCER
     Dosage: 15 MILLIGRAM
     Route: 048
     Dates: start: 20191121
  5. DUPHALAC [Concomitant]
     Active Substance: LACTULOSE
     Indication: CONSTIPATION PROPHYLAXIS
     Dosage: 670 MILLIGRAM
     Route: 048
     Dates: start: 20200520
  6. JNJ?74494550 [Suspect]
     Active Substance: CUSATUZUMAB
     Indication: ACUTE MYELOID LEUKAEMIA
     Route: 041
     Dates: start: 20190926, end: 20200612
  7. VALACICLOVIR [Concomitant]
     Active Substance: VALACYCLOVIR HYDROCHLORIDE
     Indication: FEBRILE NEUTROPENIA
     Dosage: 500 MILLIGRAM
     Route: 048
     Dates: start: 20200520
  8. AVIL [Concomitant]
     Active Substance: PHENIRAMINE
     Indication: PREMEDICATION
     Route: 041
     Dates: start: 20200612, end: 20200612
  9. AKLOVIR [Concomitant]
     Indication: APHTHOUS ULCER
     Dosage: 40 MILLIGRAM
     Route: 065
     Dates: start: 20191121
  10. LERCADIP [Concomitant]
     Active Substance: LERCANIDIPINE HYDROCHLORIDE
     Indication: HYPERTENSION
     Dosage: 10 MILLIGRAM
     Route: 048
     Dates: start: 2017, end: 20200612
  11. KYTRIL [Concomitant]
     Active Substance: GRANISETRON HYDROCHLORIDE
     Route: 041
     Dates: start: 20191221
  12. MAGNESIUM [Concomitant]
     Active Substance: MAGNESIUM
     Indication: FATIGUE
     Dosage: 365 MILLIGRAM
     Route: 048
     Dates: start: 20200205
  13. PAROL [Concomitant]
     Active Substance: ACETAMINOPHEN
     Indication: NEUTROPENIA
     Route: 048
     Dates: start: 20200520
  14. PAROL [Concomitant]
     Active Substance: ACETAMINOPHEN
     Indication: PREMEDICATION
     Dosage: 1000 MILLIGRAM
     Route: 048
     Dates: start: 20200612, end: 20200612
  15. PAROL [Concomitant]
     Active Substance: ACETAMINOPHEN
     Indication: PYREXIA
     Dosage: 1 GRAM
     Route: 041
     Dates: start: 20200630, end: 20200714
  16. AZACITIDINE INJECTABLE [Suspect]
     Active Substance: AZACITIDINE
     Indication: ACUTE MYELOID LEUKAEMIA
     Route: 058
     Dates: start: 20190924, end: 20200602
  17. KYTRIL [Concomitant]
     Active Substance: GRANISETRON HYDROCHLORIDE
     Indication: PROPHYLAXIS OF NAUSEA AND VOMITING
     Dosage: 2 MILLIGRAM
     Route: 048
     Dates: start: 20191121
  18. VORIKONAZOL [Concomitant]
     Indication: NEUTROPENIA
     Dosage: 400 MILLIGRAM
     Route: 048
     Dates: start: 20200520
  19. KCL [Concomitant]
     Active Substance: POTASSIUM CHLORIDE
     Indication: HYPOKALAEMIA
     Dosage: 40 MILLIGRAM
     Route: 048
     Dates: start: 20200609
  20. PREDNOL [Concomitant]
     Indication: PREMEDICATION
     Route: 041
     Dates: start: 20200612, end: 20200612
  21. CONCOR [Concomitant]
     Active Substance: BISOPROLOL FUMARATE
     Indication: HYPERTENSION
     Dosage: 5 MILLIGRAM
     Route: 048
     Dates: start: 2017
  22. TRIFLUCAN [Concomitant]
     Active Substance: FLUCONAZOLE
     Indication: APHTHOUS ULCER
     Dosage: 200 MILLIGRAM
     Route: 048
     Dates: start: 20191030
  23. MIKOSTATIN [Concomitant]
     Active Substance: NYSTATIN
     Indication: APHTHOUS ULCER
     Dosage: 144 MILLIGRAM
     Route: 048
     Dates: start: 20191030

REACTIONS (2)
  - Pneumonia [Recovered/Resolved]
  - Febrile neutropenia [Recovered/Resolved]

NARRATIVE: CASE EVENT DATE: 20200623
